FAERS Safety Report 5103420-5 (Version None)
Quarter: 2006Q4

REPORT INFORMATION
  Report Type: 
  Country: None (occurrence: None)
  Receive Date: 20060913
  Receipt Date: 20060908
  Transmission Date: 20070319
  Serious: Yes (Hospitalization)
  Sender: FDA-Public Use
  Company Number: US-BRISTOL-MYERS SQUIBB COMPANY-13503693

PATIENT
  Age: 49 Year
  Sex: Female
  Weight: 65 kg

DRUGS (12)
  1. ERBITUX [Suspect]
     Indication: BREAST CANCER
     Dosage: LOADING DOSE OF 680MG IV X1 25-AUG-2006
     Route: 042
     Dates: start: 20060901, end: 20060901
  2. CARBOPLATIN [Suspect]
     Indication: BREAST CANCER
     Dosage: LOADING DOSE: 1200MG IV X 1 DOSE 25-AUG-2006
     Route: 042
     Dates: start: 20060901, end: 20060901
  3. IRINOTECAN HCL [Suspect]
     Indication: BREAST CANCER
     Dosage: LOADING DOSE: 160MG IV X1 DOSE 25-AUG-2006
     Route: 042
     Dates: start: 20060901, end: 20060901
  4. ATIVAN [Concomitant]
     Indication: ANXIETY
     Route: 048
     Dates: start: 20060825
  5. EMEND [Concomitant]
     Indication: PROPHYLAXIS OF NAUSEA AND VOMITING
     Route: 048
     Dates: start: 20060901
  6. COMPAZINE [Concomitant]
     Indication: PROPHYLAXIS OF NAUSEA AND VOMITING
     Route: 048
     Dates: start: 20060825
  7. ZESTRIL [Concomitant]
     Indication: HYPERTENSION
     Route: 048
  8. AMBIEN [Concomitant]
     Indication: INSOMNIA
     Route: 048
     Dates: start: 20060815
  9. DEXAMETHASONE TAB [Concomitant]
     Route: 048
     Dates: start: 20060901
  10. LOZOL [Concomitant]
     Indication: DIURETIC THERAPY
     Route: 048
  11. MAGNESIUM OXIDE [Concomitant]
     Route: 048
  12. ROXICODONE [Concomitant]
     Indication: PAIN
     Route: 048
     Dates: start: 20060815

REACTIONS (3)
  - DEHYDRATION [None]
  - DIARRHOEA [None]
  - NAUSEA [None]
